FAERS Safety Report 9788005 (Version 1)
Quarter: 2013Q4

REPORT INFORMATION
  Report Type: Report from Study
  Country: LB (occurrence: LB)
  Receive Date: 20131230
  Receipt Date: 20131230
  Transmission Date: 20140711
  Serious: Yes (Hospitalization)
  Sender: FDA-Public Use
  Company Number: LB-SA-2013SA134334

PATIENT
  Age: 75 Year
  Sex: Female

DRUGS (9)
  1. LANTUS [Suspect]
     Indication: PRODUCT USED FOR UNKNOWN INDICATION
     Route: 058
     Dates: start: 20130601
  2. SOLOSTAR [Concomitant]
     Indication: DEVICE THERAPY
  3. DIALON [Concomitant]
  4. AMARYL [Concomitant]
  5. TRITACE [Concomitant]
  6. CONCOR [Concomitant]
  7. SPIRIVA [Concomitant]
  8. OMEPRAZOLE [Concomitant]
  9. SULODEXIDE [Concomitant]

REACTIONS (1)
  - Cholecystectomy [Recovered/Resolved]
